FAERS Safety Report 23142572 (Version 1)
Quarter: 2023Q4

REPORT INFORMATION
  Report Type: Spontaneous
  Country: CO (occurrence: CO)
  Receive Date: 20231103
  Receipt Date: 20231103
  Transmission Date: 20240109
  Serious: Yes (Death, Hospitalization, Other)
  Sender: FDA-Public Use
  Company Number: CO-BAXTER-2023BAX034124

PATIENT
  Sex: Male
  Weight: 67 kg

DRUGS (1)
  1. DIANEAL [Suspect]
     Active Substance: CALCIUM CHLORIDE\DEXTROSE\MAGNESIUM CHLORIDE\SODIUM CHLORIDE\SODIUM LACTATE
     Dosage: 4 TIMES PER DAY (EXCHANGE OF 4 HRS)
     Route: 033
     Dates: start: 20210615

REACTIONS (5)
  - Septic shock [Fatal]
  - Device malfunction [Recovered/Resolved]
  - Acute pulmonary oedema [Unknown]
  - Pneumonia [Unknown]
  - Cerebrovascular accident [Unknown]
